FAERS Safety Report 10092730 (Version 1)
Quarter: 2014Q2

REPORT INFORMATION
  Report Type: Spontaneous
  Country: US (occurrence: US)
  Receive Date: 20140421
  Receipt Date: 20140421
  Transmission Date: 20141212
  Serious: No
  Sender: FDA-Public Use
  Company Number: US-SANOFI-AVENTIS-2013SA046166

PATIENT
  Age: 60 Year
  Sex: Female

DRUGS (3)
  1. ALLEGRA 24 HOUR [Suspect]
     Indication: HYPERSENSITIVITY
     Dosage: FREQUENCY: DAILY IF NEEDED
     Route: 065
     Dates: start: 2011
  2. ALLEGRA 24 HOUR [Suspect]
     Indication: HYPERSENSITIVITY
     Route: 065
  3. HYZAAR [Concomitant]
     Indication: BLOOD PRESSURE
     Dosage: STRENGTH: 100/25

REACTIONS (1)
  - Incorrect dose administered [Unknown]
